FAERS Safety Report 16074351 (Version 2)
Quarter: 2019Q1

REPORT INFORMATION
  Report Type: Spontaneous
  Country: US (occurrence: US)
  Receive Date: 20190314
  Receipt Date: 20190315
  Transmission Date: 20190418
  Serious: Yes (Death)
  Sender: FDA-Public Use
  Company Number: US-ALLERGAN-1911154US

PATIENT
  Sex: Female

DRUGS (6)
  1. ASENAPINE MALEATE UNK [Suspect]
     Active Substance: ASENAPINE MALEATE
     Indication: COMPLETED SUICIDE
     Route: 048
  2. ALPRAZOLAM. [Suspect]
     Active Substance: ALPRAZOLAM
     Indication: COMPLETED SUICIDE
     Route: 048
  3. AMLODIPINE [Suspect]
     Active Substance: AMLODIPINE BESYLATE
     Indication: COMPLETED SUICIDE
     Route: 048
  4. HYDROXYZINE [Suspect]
     Active Substance: HYDROXYZINE HYDROCHLORIDE
     Indication: COMPLETED SUICIDE
     Route: 048
  5. VALPROIC ACID. [Suspect]
     Active Substance: VALPROIC ACID
     Indication: COMPLETED SUICIDE
     Route: 048
  6. OMEPRAZOL [Suspect]
     Active Substance: OMEPRAZOLE
     Indication: COMPLETED SUICIDE
     Dosage: UNK
     Route: 048

REACTIONS (2)
  - Completed suicide [Fatal]
  - Off label use [Unknown]
